FAERS Safety Report 16628405 (Version 1)
Quarter: 2019Q3

REPORT INFORMATION
  Report Type: Spontaneous
  Country: US (occurrence: US)
  Receive Date: 20190724
  Receipt Date: 20190724
  Transmission Date: 20191004
  Serious: Yes (Life-Threatening, Hospitalization, Other)
  Sender: FDA-Public Use
  Company Number: None

PATIENT
  Age: 23 Year
  Sex: Female
  Weight: 92.08 kg

DRUGS (1)
  1. OFLAXACIN 0.3% OTIC SOLN 5ML EAR [Suspect]
     Active Substance: OFLOXACIN
     Indication: TYMPANIC MEMBRANE PERFORATION
     Dates: start: 20190723

REACTIONS (3)
  - Dyspnoea [None]
  - Drug hypersensitivity [None]
  - Loss of consciousness [None]

NARRATIVE: CASE EVENT DATE: 20190723
